FAERS Safety Report 18735858 (Version 1)
Quarter: 2021Q1

REPORT INFORMATION
  Report Type: Spontaneous
  Country: MX (occurrence: MX)
  Receive Date: 20210113
  Receipt Date: 20210113
  Transmission Date: 20210419
  Serious: Yes (Other)
  Sender: FDA-Public Use
  Company Number: MX-PFIZER INC-2021013548

PATIENT
  Age: 62 Year
  Sex: Male

DRUGS (3)
  1. ATIVAN [Suspect]
     Active Substance: LORAZEPAM
     Indication: ALCOHOLISM
  2. ATIVAN [Suspect]
     Active Substance: LORAZEPAM
     Indication: INSOMNIA
  3. ATIVAN [Suspect]
     Active Substance: LORAZEPAM
     Indication: ANXIETY
     Dosage: 1.5 MG, DAILY
     Dates: start: 1992

REACTIONS (5)
  - Shock [Unknown]
  - Insomnia [Unknown]
  - Dependence [Unknown]
  - Nervous system disorder [Unknown]
  - Hypertension [Unknown]
